FAERS Safety Report 6392397-0 (Version None)
Quarter: 2009Q4

REPORT INFORMATION
  Report Type: 
  Country: None (occurrence: None)
  Receive Date: 20091005
  Receipt Date: 20090917
  Transmission Date: 20100525
  Serious: Yes (Hospitalization)
  Sender: FDA-Public Use
  Company Number: A03200904393

PATIENT
  Age: 54 Year
  Sex: Female

DRUGS (5)
  1. OFORTA [Suspect]
     Indication: CHRONIC LYMPHOCYTIC LEUKAEMIA
     Dosage: ORAL
     Route: 048
  2. RITUXIMAB [Suspect]
  3. ANALGESICS [Concomitant]
  4. OPIOIDS (OPIOIDS) [Concomitant]
  5. GADOLINIUN (GADOLINIUN) [Concomitant]

REACTIONS (10)
  - ALTERED STATE OF CONSCIOUSNESS [None]
  - BRAIN INJURY [None]
  - CONFUSIONAL STATE [None]
  - HERPES ZOSTER [None]
  - ISCHAEMIA [None]
  - MENINGITIS [None]
  - NECROSIS [None]
  - PROTEIN TOTAL INCREASED [None]
  - PSYCHOMOTOR RETARDATION [None]
  - VASCULITIS CEREBRAL [None]
